FAERS Safety Report 9797550 (Version 1)
Quarter: 2014Q1

REPORT INFORMATION
  Report Type: Spontaneous
  Country: US (occurrence: None)
  Receive Date: 20140102
  Receipt Date: 20140102
  Transmission Date: 20141002
  Serious: Yes (Disabling)
  Sender: FDA-Public Use
  Company Number: None

PATIENT
  Age: 67 Year
  Sex: Female
  Weight: 58.97 kg

DRUGS (6)
  1. CIPROFLOXACIN 500MG [Suspect]
     Indication: GASTROINTESTINAL INFECTION
     Dosage: 1 PILL
     Route: 048
     Dates: start: 20120628, end: 20120702
  2. FENOFIBRATE [Concomitant]
  3. FLOVENT HFA [Concomitant]
  4. PROAIR [Concomitant]
  5. CALCIMATE PLU 800 [Concomitant]
  6. BAYER ASPIRIN [Concomitant]

REACTIONS (4)
  - Pruritus [None]
  - Burning sensation [None]
  - Erythromelalgia [None]
  - Pain in extremity [None]
